FAERS Safety Report 17584703 (Version 1)
Quarter: 2020Q1

REPORT INFORMATION
  Report Type: Spontaneous
  Country: US (occurrence: US)
  Receive Date: 20200326
  Receipt Date: 20200326
  Transmission Date: 20200409
  Serious: No
  Sender: FDA-Public Use
  Company Number: US-CELGENEUS-USA-20200306200

PATIENT
  Age: 32 Year
  Sex: Female

DRUGS (2)
  1. OTEZLA [Suspect]
     Active Substance: APREMILAST
     Indication: PSORIASIS
     Dosage: 60 MILLIGRAM
     Route: 048
     Dates: start: 20190823, end: 201911
  2. OTEZLA [Suspect]
     Active Substance: APREMILAST
     Dosage: SAMPLE PACK
     Route: 048
     Dates: start: 2020

REACTIONS (3)
  - Product dose omission [Unknown]
  - Psoriasis [Unknown]
  - Stress [Unknown]

NARRATIVE: CASE EVENT DATE: 201911
